FAERS Safety Report 16369790 (Version 1)
Quarter: 2019Q2

REPORT INFORMATION
  Report Type: Spontaneous
  Country: US (occurrence: US)
  Receive Date: 20190530
  Receipt Date: 20190530
  Transmission Date: 20190711
  Serious: Yes (Hospitalization)
  Sender: FDA-Public Use
  Company Number: US-TAKEDA-2019TUS031615

PATIENT
  Age: 33 Year
  Sex: Male

DRUGS (4)
  1. ENTOCORT [Concomitant]
     Active Substance: BUDESONIDE
     Indication: DIARRHOEA
     Dosage: UNK
  2. FLAGYL [Concomitant]
     Active Substance: METRONIDAZOLE\METRONIDAZOLE HYDROCHLORIDE
     Indication: DIARRHOEA
     Dosage: UNK
  3. CIPRO [Concomitant]
     Active Substance: CIPROFLOXACIN HYDROCHLORIDE
     Indication: DIARRHOEA
     Dosage: UNK
  4. ENTYVIO [Suspect]
     Active Substance: VEDOLIZUMAB
     Indication: COLITIS ULCERATIVE
     Dosage: UNK
     Route: 042

REACTIONS (7)
  - Dehydration [Unknown]
  - Arthralgia [Unknown]
  - Blood potassium decreased [Unknown]
  - Syncope [Unknown]
  - Clostridium difficile infection [Unknown]
  - Colitis [Unknown]
  - Weight decreased [Unknown]
